FAERS Safety Report 8984220 (Version 2)
Quarter: 2013Q1

REPORT INFORMATION
  Report Type: Spontaneous
  Country: CA (occurrence: None)
  Receive Date: 20121212
  Receipt Date: 20121218
  Transmission Date: 20140127
  Serious: Yes (Other)
  Sender: FDA-Public Use
  Company Number: 2012120021

PATIENT
  Age: 47 Year
  Sex: Female

DRUGS (2)
  1. SUBLINOX (ZOLPIDEM) [Suspect]
     Indication: INSOMNIA
     Dosage: AT BEDTIME
     Route: 048
     Dates: start: 20121117, end: 201212
  2. INSULIN (INSULIN) [Concomitant]

REACTIONS (5)
  - Hallucination [None]
  - Hallucination, auditory [None]
  - Amnesia [None]
  - Somnambulism [None]
  - Anger [None]
